FAERS Safety Report 14294260 (Version 1)
Quarter: 2017Q4

REPORT INFORMATION
  Report Type: Spontaneous
  Country: US (occurrence: US)
  Receive Date: 20171217
  Receipt Date: 20171217
  Transmission Date: 20180321
  Serious: No
  Sender: FDA-Public Use
  Company Number: US-MYLANLABS-2017M1074971

PATIENT
  Age: 68 Year
  Sex: Female

DRUGS (1)
  1. PENTOXIFYLLINE EXTENDED-RELEASE TABLETS, USP [Suspect]
     Active Substance: PENTOXIFYLLINE
     Indication: PRODUCT USED FOR UNKNOWN INDICATION
     Dosage: UNK
     Route: 048
     Dates: start: 20171016

REACTIONS (3)
  - Drug ineffective [Unknown]
  - Product quality issue [Not Recovered/Not Resolved]
  - No adverse event [Unknown]

NARRATIVE: CASE EVENT DATE: 20171026
